FAERS Safety Report 7733483-X (Version None)
Quarter: 2011Q3

REPORT INFORMATION
  Report Type: 
  Country: None (occurrence: None)
  Receive Date: 20110902
  Receipt Date: 20110902
  Transmission Date: 20111222
  Serious: Yes (Life-Threatening)
  Sender: FDA-Public Use
  Company Number: None

PATIENT
  Age: 52 Year
  Sex: Male
  Weight: 83.4619 kg

DRUGS (1)
  1. HALOPERIDOL [Suspect]
     Indication: SCHIZOPHRENIA
     Dosage: 5 MG HS DAILY PO 2 NIGHTS
     Route: 048
     Dates: start: 20110725, end: 20110726

REACTIONS (3)
  - INSOMNIA [None]
  - RESTLESSNESS [None]
  - AGITATION [None]
